FAERS Safety Report 22061523 (Version 2)
Quarter: 2023Q2

REPORT INFORMATION
  Report Type: Report from Study
  Country: TR (occurrence: TR)
  Receive Date: 20230304
  Receipt Date: 20230427
  Transmission Date: 20230722
  Serious: Yes (Death, Hospitalization)
  Sender: FDA-Public Use
  Company Number: TR-ABBVIE-4129654

PATIENT
  Sex: Male
  Weight: 70 kg

DRUGS (6)
  1. CARBIDOPA\LEVODOPA [Suspect]
     Active Substance: CARBIDOPA\LEVODOPA
     Indication: Parkinson^s disease
     Dosage: MORNING DOSE (ML): 8.00 CONTINUOS DOSE (ML): 3.10 EXTRA DOSE (ML): 1.00
     Route: 050
     Dates: start: 20220919, end: 20220928
  2. CARBIDOPA\LEVODOPA [Suspect]
     Active Substance: CARBIDOPA\LEVODOPA
     Dosage: MORNING DOSE (ML): 8.00 CONTINIOUS DOSE (ML): 3.60 EXTRA DOSE (ML): 1.00
     Route: 050
     Dates: start: 20220928, end: 20221017
  3. CARBIDOPA\LEVODOPA [Suspect]
     Active Substance: CARBIDOPA\LEVODOPA
     Dosage: MORNING DOSE (ML): 8.00 CONTINIOUS DOSE (ML): 4.00 EXTRA DOSE (ML): 1.00
     Route: 050
     Dates: start: 20221017, end: 20221021
  4. CARBIDOPA\LEVODOPA [Suspect]
     Active Substance: CARBIDOPA\LEVODOPA
     Dosage: MORNING DOSE (ML): 8.00 CONTINUOUS DOSE (ML): 4.20 EXTRA DOSE (ML): 1.00
     Dates: start: 20221021
  5. Carbidopa+Levodopa (DOPADEX SR) [Concomitant]
     Indication: Parkinson^s disease
     Dosage: 200 MILLIGRAM
     Route: 048
  6. MEROPENEM [Concomitant]
     Active Substance: MEROPENEM
     Indication: C-reactive protein increased
     Dosage: TIME INTERVAL: 0.33333333 DAYS: 3 GRAM
     Route: 042

REACTIONS (9)
  - Death [Fatal]
  - Parkinson^s disease [Not Recovered/Not Resolved]
  - Bradykinesia [Not Recovered/Not Resolved]
  - C-reactive protein increased [Not Recovered/Not Resolved]
  - On and off phenomenon [Not Recovered/Not Resolved]
  - Infection [Not Recovered/Not Resolved]
  - Abdominal pain [Not Recovered/Not Resolved]
  - Hypophagia [Not Recovered/Not Resolved]
  - Device occlusion [Unknown]

NARRATIVE: CASE EVENT DATE: 20220101
